FAERS Safety Report 5956484-0 (Version None)
Quarter: 2008Q4

REPORT INFORMATION
  Report Type: 
  Country: None (occurrence: None)
  Receive Date: 20081118
  Receipt Date: 20081110
  Transmission Date: 20090506
  Serious: Yes (Hospitalization)
  Sender: FDA-Public Use
  Company Number: A0684178A

PATIENT
  Age: 49 Year
  Sex: Female
  Weight: 102.3 kg

DRUGS (12)
  1. AVANDIA [Suspect]
     Indication: DIABETES MELLITUS
     Dosage: 2MG PER DAY
     Route: 048
     Dates: start: 20050125, end: 20070126
  2. AVANDAMET [Suspect]
     Indication: DIABETES MELLITUS
     Route: 048
     Dates: start: 20050202, end: 20070602
  3. AVANDARYL [Suspect]
     Indication: DIABETES MELLITUS
     Route: 048
     Dates: start: 20060228, end: 20061003
  4. CHOLESTYRAMINE [Concomitant]
  5. VITAMIN B6 [Concomitant]
  6. LYRICA [Concomitant]
  7. AMBIEN [Concomitant]
  8. ZOCOR [Concomitant]
     Dosage: 20MG PER DAY
  9. TOPROL-XL [Concomitant]
     Dosage: 100MG PER DAY
  10. VASOTEC [Concomitant]
     Dosage: 5MG PER DAY
  11. PLAVIX [Concomitant]
     Dosage: 75MG PER DAY
  12. ASPIRIN [Concomitant]
     Dosage: 81MG PER DAY

REACTIONS (3)
  - CARDIAC FAILURE CONGESTIVE [None]
  - HEART INJURY [None]
  - MYOCARDIAL INFARCTION [None]
